FAERS Safety Report 18145948 (Version 2)
Quarter: 2020Q3

REPORT INFORMATION
  Report Type: Spontaneous
  Country: CN (occurrence: CN)
  Receive Date: 20200813
  Receipt Date: 20200907
  Transmission Date: 20201103
  Serious: Yes (Death)
  Sender: FDA-Public Use
  Company Number: CN-ASTRAZENECA-2020SF01173

PATIENT
  Age: 51 Year
  Sex: Male

DRUGS (2)
  1. NEXIUM [Suspect]
     Active Substance: ESOMEPRAZOLE MAGNESIUM
     Indication: GASTROINTESTINAL HAEMORRHAGE
     Dosage: 80.0MG UNKNOWN
     Route: 042
  2. NEXIUM [Suspect]
     Active Substance: ESOMEPRAZOLE MAGNESIUM
     Indication: GASTROINTESTINAL HAEMORRHAGE
     Dosage: 8.0MG UNKNOWN
     Route: 042

REACTIONS (6)
  - Lung neoplasm malignant [Fatal]
  - Oropharyngeal discomfort [Unknown]
  - Pleural effusion [Unknown]
  - Cardiac failure [Fatal]
  - Respiratory failure [Fatal]
  - Ascites [Unknown]
